FAERS Safety Report 8675141 (Version 4)
Quarter: 2012Q4

REPORT INFORMATION
  Report Type: 
  Country: FR (occurrence: FR)
  Receive Date: 20120720
  Receipt Date: 20120911
  Transmission Date: 20130627
  Serious: Yes (Life-Threatening, Other)
  Sender: FDA-Public Use
  Company Number: FR-PFIZER INC-2012147421

PATIENT
  Age: 40 Year
  Sex: Female

DRUGS (5)
  1. ARGANOVA [Suspect]
     Indication: HEPARIN-INDUCED THROMBOCYTOPENIA
     Dosage: 1 ug/kg/min
     Route: 042
     Dates: start: 20120415, end: 20120424
  2. ARGANOVA [Suspect]
     Dosage: 1 ug/kg/min
     Route: 042
     Dates: start: 20120424, end: 20120424
  3. ARGANOVA [Suspect]
     Dosage: 1 ug/kg/min
     Route: 042
     Dates: start: 20120430, end: 20120518
  4. ROCEPHIN [Concomitant]
     Indication: COUGH
     Dosage: 1 g, 1x/day
     Route: 065
  5. VENTOLIN [Concomitant]
     Dosage: UNK, as required

REACTIONS (4)
  - Haemorrhage [Recovered/Resolved]
  - Shock haemorrhagic [Recovered/Resolved]
  - Splenic infarction [Recovered/Resolved]
  - Aneurysm [Recovered/Resolved]
